FAERS Safety Report 7763511-7 (Version None)
Quarter: 2011Q3

REPORT INFORMATION
  Report Type: 
  Country: None (occurrence: None)
  Receive Date: 20110920
  Receipt Date: 20110912
  Transmission Date: 20111222
  Serious: Yes (Hospitalization)
  Sender: FDA-Public Use
  Company Number: PHHY2011US63092

PATIENT
  Sex: Male

DRUGS (1)
  1. EXJADE [Suspect]
     Indication: IRON METABOLISM DISORDER
     Dosage: 1500 MG, DAILY
     Route: 048
     Dates: start: 20110316

REACTIONS (5)
  - BLOOD PRESSURE DECREASED [None]
  - CARDIAC FAILURE CONGESTIVE [None]
  - HEART RATE ABNORMAL [None]
  - FLUID RETENTION [None]
  - RENAL FAILURE [None]
